FAERS Safety Report 10087094 (Version 1)
Quarter: 2014Q2

REPORT INFORMATION
  Report Type: Spontaneous
  Country: US (occurrence: US)
  Receive Date: 20140418
  Receipt Date: 20140418
  Transmission Date: 20141212
  Serious: No
  Sender: FDA-Public Use
  Company Number: US-UPSHER-SMITH LABORATORIES, INC.-14000644

PATIENT
  Age: 31 Year
  Sex: Female
  Weight: 54 kg

DRUGS (1)
  1. PREVALITE [Suspect]
     Indication: EXPOSURE TO MOULD
     Dosage: 4 G, ONCE
     Route: 048
     Dates: start: 20140318, end: 20140318

REACTIONS (3)
  - Dizziness [Recovered/Resolved]
  - Migraine [Recovered/Resolved]
  - Abdominal pain upper [Recovered/Resolved]
